FAERS Safety Report 8904034 (Version 1)
Quarter: 2012Q4

REPORT INFORMATION
  Report Type: 
  Country: DE (occurrence: DE)
  Receive Date: 20121112
  Receipt Date: 20121112
  Transmission Date: 20130627
  Serious: Yes (Other)
  Sender: FDA-Public Use
  Company Number: DE-MYLANLABS-2012S1022542

PATIENT
  Age: 0 Year
  Sex: Female
  Weight: 3.3 kg

DRUGS (1)
  1. TOPIRAMATE [Suspect]
     Dosage: 125 [mg/d (50-0-75) ]
     Route: 064

REACTIONS (5)
  - Exposure during pregnancy [Recovered/Resolved]
  - Grand mal convulsion [Recovered/Resolved]
  - Foetal heart rate deceleration [Unknown]
  - Atrioventricular block first degree [Not Recovered/Not Resolved]
  - Hypocalcaemia [Unknown]
